FAERS Safety Report 26114702 (Version 1)
Quarter: 2025Q4

REPORT INFORMATION
  Report Type: Spontaneous
  Country: GB (occurrence: GB)
  Receive Date: 20251202
  Receipt Date: 20251202
  Transmission Date: 20260118
  Serious: Yes (Death, Hospitalization, Other)
  Sender: HETERO
  Company Number: None

PATIENT
  Sex: Female

DRUGS (1)
  1. APIXABAN [Suspect]
     Active Substance: APIXABAN
     Indication: Pulmonary embolism
     Dosage: 10 MILLIGRAM, T.I.D.
     Route: 065
     Dates: start: 20250317, end: 20250323

REACTIONS (2)
  - Gastrointestinal haemorrhage [Fatal]
  - Incorrect dose administered [Unknown]
